FAERS Safety Report 14315525 (Version 2)
Quarter: 2018Q1

REPORT INFORMATION
  Report Type: Report from Study
  Country: US (occurrence: US)
  Receive Date: 20171221
  Receipt Date: 20180201
  Transmission Date: 20180509
  Serious: No
  Sender: FDA-Public Use
  Company Number: US-009507513-1712USA010047

PATIENT
  Age: 43 Year
  Sex: Female
  Weight: 95.71 kg

DRUGS (1)
  1. IMPLANON [Suspect]
     Active Substance: ETONOGESTREL
     Dosage: 68 MG, 1 ROD, UNK
     Route: 059
     Dates: start: 20171115, end: 20171215

REACTIONS (5)
  - Device expulsion [Recovered/Resolved]
  - Implant site pain [Unknown]
  - Implant site erythema [Unknown]
  - Complication associated with device [Recovered/Resolved]
  - Device dislocation [Recovered/Resolved]

NARRATIVE: CASE EVENT DATE: 20171215
